FAERS Safety Report 9023869 (Version 4)
Quarter: 2013Q3

REPORT INFORMATION
  Report Type: Report from Study
  Country: JP (occurrence: JP)
  Receive Date: 20130121
  Receipt Date: 20130731
  Transmission Date: 20140515
  Serious: Yes (Hospitalization, Other)
  Sender: FDA-Public Use
  Company Number: JP-ELI_LILLY_AND_COMPANY-JP201301003450

PATIENT
  Sex: Female

DRUGS (1)
  1. TERIPARATIDE [Suspect]
     Dosage: UNK
     Route: 058
     Dates: start: 20121130

REACTIONS (5)
  - Muscle injury [Unknown]
  - Foot fracture [Unknown]
  - Chest pain [Recovered/Resolved]
  - Back pain [Unknown]
  - Aspartate aminotransferase increased [Unknown]
